FAERS Safety Report 20791659 (Version 4)
Quarter: 2022Q3

REPORT INFORMATION
  Report Type: Report from Study
  Country: MY (occurrence: MY)
  Receive Date: 20220505
  Receipt Date: 20220905
  Transmission Date: 20221027
  Serious: Yes (Hospitalization, Disabling)
  Sender: FDA-Public Use
  Company Number: MY-NOVARTISPH-NVSC2022MY072570

PATIENT
  Age: 61 Year
  Sex: Female
  Weight: 52 kg

DRUGS (5)
  1. CAPMATINIB [Suspect]
     Active Substance: CAPMATINIB
     Indication: Lung neoplasm malignant
     Dosage: 200 MG, BID
     Route: 065
     Dates: start: 20211203
  2. CAPMATINIB [Suspect]
     Active Substance: CAPMATINIB
     Dosage: 300 MG, BID
     Route: 048
     Dates: start: 20220311, end: 20220402
  3. CAPMATINIB [Suspect]
     Active Substance: CAPMATINIB
     Dosage: 200 MG, BID
     Route: 048
     Dates: start: 20220418
  4. CAPMATINIB [Suspect]
     Active Substance: CAPMATINIB
     Dosage: 300 MG, BID
     Route: 048
     Dates: start: 20220414
  5. RIVAROXABAN [Concomitant]
     Active Substance: RIVAROXABAN
     Indication: Deep vein thrombosis
     Dosage: 20 MG
     Route: 065
     Dates: start: 20211003, end: 20220311

REACTIONS (8)
  - Nausea [Recovered/Resolved]
  - Vomiting [Recovered/Resolved]
  - Abdominal pain [Recovered/Resolved]
  - Diarrhoea [Recovered/Resolved]
  - Nail disorder [Unknown]
  - Oedema [Unknown]
  - Constipation [Unknown]
  - Pruritus [Unknown]

NARRATIVE: CASE EVENT DATE: 20220311
